FAERS Safety Report 6283182-9 (Version None)
Quarter: 2009Q3

REPORT INFORMATION
  Report Type: 
  Country: None (occurrence: None)
  Receive Date: 20090724
  Receipt Date: 20090718
  Transmission Date: 20100115
  Serious: Yes (Death)
  Sender: FDA-Public Use
  Company Number: B0584812A

PATIENT
  Age: 72 Year
  Sex: Male

DRUGS (6)
  1. AUGMENTIN '125' [Suspect]
     Indication: DRUG USE FOR UNKNOWN INDICATION
     Route: 065
     Dates: start: 20090709
  2. UNKNOWN DRUG [Concomitant]
     Route: 042
     Dates: start: 20090707, end: 20090708
  3. UNKNOWN DRUG [Concomitant]
     Route: 042
     Dates: start: 20090707, end: 20090708
  4. CEFTRIAXON [Concomitant]
     Dosage: 1G PER DAY
     Dates: start: 20090707, end: 20090708
  5. FLAGYL [Concomitant]
     Dates: start: 20090707, end: 20090708
  6. ACETAMINOPHEN [Concomitant]
     Dates: start: 20090707, end: 20090708

REACTIONS (2)
  - ANAPHYLACTIC SHOCK [None]
  - PRODUCT QUALITY ISSUE [None]
